FAERS Safety Report 7417402-1 (Version None)
Quarter: 2011Q2

REPORT INFORMATION
  Report Type: 
  Country: None (occurrence: None)
  Receive Date: 20110415
  Receipt Date: 20110401
  Transmission Date: 20111010
  Serious: No
  Sender: FDA-Public Use
  Company Number: DK-DENTSPLY-2010-0042-EUR

PATIENT
  Sex: Female
  Weight: 58 kg

DRUGS (4)
  1. AMLODIPINE [Concomitant]
     Dates: start: 20050601, end: 20100801
  2. IPREN [Concomitant]
     Indication: PAIN
     Dosage: 2-3 TABS, 3 TIMES/DAY
     Dates: start: 20080407, end: 20080409
  3. XYLOCAINE [Suspect]
     Route: 053
     Dates: start: 20080407, end: 20080407
  4. DIOVAN [Concomitant]
     Dates: start: 20050601, end: 20100801

REACTIONS (5)
  - AUTONOMIC NEUROPATHY [None]
  - PARAESTHESIA [None]
  - PELVIC FLOOR MUSCLE WEAKNESS [None]
  - HYPOAESTHESIA ORAL [None]
  - MONOPARESIS [None]
